FAERS Safety Report 13788789 (Version 2)
Quarter: 2017Q4

REPORT INFORMATION
  Report Type: Spontaneous
  Country: US (occurrence: US)
  Receive Date: 20170725
  Receipt Date: 20171121
  Transmission Date: 20180320
  Serious: No
  Sender: FDA-Public Use
  Company Number: US-JNJFOC-20170526119

PATIENT
  Age: 82 Year
  Sex: Female
  Weight: 54 kg

DRUGS (13)
  1. IMBRUVICA [Suspect]
     Active Substance: IBRUTINIB
     Indication: MANTLE CELL LYMPHOMA
     Route: 048
     Dates: start: 201704, end: 2017
  2. CYANOCOBALAMIN. [Concomitant]
     Active Substance: CYANOCOBALAMIN
     Route: 048
  3. LORAZEPAM. [Concomitant]
     Active Substance: LORAZEPAM
     Route: 048
  4. MACROGOL [Concomitant]
     Active Substance: POLYETHYLENE GLYCOLS
  5. BIFIDOBACTERIUM LACTIS [Concomitant]
     Active Substance: BIFIDOBACTERIUM ANIMALIS LACTIS
  6. IMBRUVICA [Suspect]
     Active Substance: IBRUTINIB
     Indication: MANTLE CELL LYMPHOMA
     Route: 048
     Dates: start: 201710
  7. VITAMIN D [Concomitant]
     Active Substance: CHOLECALCIFEROL
     Dosage: 2000 IU, QD
     Route: 048
  8. ARMOUR THYROID [Concomitant]
     Active Substance: THYROID, PORCINE
     Route: 048
  9. CLARITIN [Concomitant]
     Active Substance: LORATADINE
  10. IMBRUVICA [Suspect]
     Active Substance: IBRUTINIB
     Indication: MANTLE CELL LYMPHOMA
     Route: 048
     Dates: start: 20170420
  11. CARAFATE [Concomitant]
     Active Substance: SUCRALFATE
  12. IMBRUVICA [Suspect]
     Active Substance: IBRUTINIB
     Indication: MANTLE CELL LYMPHOMA
     Route: 048
     Dates: start: 20170522
  13. LIDOCAINE AND PRILOCAINE [Concomitant]
     Active Substance: LIDOCAINE\PRILOCAINE

REACTIONS (20)
  - Hypokalaemia [Unknown]
  - Dry mouth [Unknown]
  - Stomatitis [Unknown]
  - Gastrooesophageal reflux disease [Unknown]
  - Protein total decreased [Unknown]
  - Dizziness [Not Recovered/Not Resolved]
  - Platelet count decreased [Unknown]
  - Amnesia [Unknown]
  - White blood cell count increased [Recovering/Resolving]
  - Nocturia [Recovering/Resolving]
  - Mitral valve incompetence [Unknown]
  - Blood chloride increased [Unknown]
  - Rash [Recovering/Resolving]
  - Diarrhoea [Recovering/Resolving]
  - Cough [Recovering/Resolving]
  - Contusion [Unknown]
  - Meniere^s disease [Unknown]
  - Myalgia [Recovering/Resolving]
  - Increased tendency to bruise [Unknown]
  - Blood albumin decreased [Unknown]

NARRATIVE: CASE EVENT DATE: 2017
